FAERS Safety Report 23921592 (Version 1)
Quarter: 2024Q2

REPORT INFORMATION
  Report Type: Spontaneous
  Country: SE (occurrence: SE)
  Receive Date: 20240530
  Receipt Date: 20240530
  Transmission Date: 20240715
  Serious: Yes (Other)
  Sender: FDA-Public Use
  Company Number: None

PATIENT
  Age: 30 Year
  Sex: Male

DRUGS (1)
  1. RISPERIDONE [Suspect]
     Active Substance: RISPERIDONE
     Indication: Psychotic disorder
     Dosage: 1+1
     Route: 048
     Dates: start: 20240427, end: 20240508

REACTIONS (5)
  - Musculoskeletal stiffness [Recovering/Resolving]
  - Pain in extremity [Recovering/Resolving]
  - Salivary hypersecretion [Recovering/Resolving]
  - Muscle spasms [Recovering/Resolving]
  - Extrapyramidal disorder [Recovering/Resolving]
